FAERS Safety Report 21580045 (Version 2)
Quarter: 2022Q4

REPORT INFORMATION
  Report Type: Spontaneous
  Country: FR (occurrence: FR)
  Receive Date: 20221110
  Receipt Date: 20221229
  Transmission Date: 20230112
  Serious: Yes (Death, Other)
  Sender: FDA-Public Use
  Company Number: FR-009507513-2211FRA003015

PATIENT
  Sex: Male
  Weight: 59 kg

DRUGS (1)
  1. KEYTRUDA [Suspect]
     Active Substance: PEMBROLIZUMAB
     Indication: Adenocarcinoma of colon
     Dosage: 200 MILLIGRAM
     Route: 042
     Dates: start: 20221018

REACTIONS (4)
  - Shock haemorrhagic [Fatal]
  - Anaemia [Unknown]
  - Atrial fibrillation [Unknown]
  - Palliative sedation [Unknown]

NARRATIVE: CASE EVENT DATE: 20220101
